FAERS Safety Report 25938025 (Version 1)
Quarter: 2025Q4

REPORT INFORMATION
  Report Type: Spontaneous
  Country: ZA (occurrence: ZA)
  Receive Date: 20251018
  Receipt Date: 20251018
  Transmission Date: 20260119
  Serious: Yes (Death)
  Sender: CSL BEHRING
  Company Number: ZA-ROCHE-10000409080

PATIENT
  Sex: Female

DRUGS (1)
  1. MIRCERA [Suspect]
     Active Substance: METHOXY POLYETHYLENE GLYCOL-EPOETIN BETA
     Indication: Product used for unknown indication
     Route: 065

REACTIONS (7)
  - Death [Fatal]
  - Haemoglobin decreased [Unknown]
  - Blood iron decreased [Unknown]
  - Transferrin decreased [Unknown]
  - Serum ferritin increased [Unknown]
  - Transferrin saturation decreased [Unknown]
  - Blood urea increased [Unknown]
